FAERS Safety Report 5734048-1 (Version None)
Quarter: 2008Q2

REPORT INFORMATION
  Report Type: 
  Country: None (occurrence: None)
  Receive Date: 20080509
  Receipt Date: 20080430
  Transmission Date: 20081010
  Serious: Yes (Congenital Anomaly)
  Sender: FDA-Public Use
  Company Number: GB-ABBOTT-07P-167-0359021-00

PATIENT
  Sex: Male
  Weight: 3.587 kg

DRUGS (1)
  1. VALPROIC ACID [Suspect]
     Indication: DRUG EXPOSURE DURING PREGNANCY
     Route: 064

REACTIONS (27)
  - ABNORMAL BEHAVIOUR [None]
  - AGGRESSION [None]
  - ASOCIAL BEHAVIOUR [None]
  - COGNITIVE DISORDER [None]
  - CONGENITAL FOOT MALFORMATION [None]
  - CONGENITAL HAND MALFORMATION [None]
  - CONGENITAL HEARING DISORDER [None]
  - CONGENITAL NAIL DISORDER [None]
  - CONGENITAL NOSE MALFORMATION [None]
  - CRANIOSYNOSTOSIS [None]
  - DEVELOPMENTAL DELAY [None]
  - DISTURBANCE IN SOCIAL BEHAVIOUR [None]
  - DRUG EXPOSURE DURING PREGNANCY [None]
  - DYSMORPHISM [None]
  - EAR MALFORMATION [None]
  - ENURESIS [None]
  - FOETAL ANTICONVULSANT SYNDROME [None]
  - FOOT DEFORMITY [None]
  - HYPOACUSIS [None]
  - HYPOKINESIA [None]
  - JOINT INSTABILITY [None]
  - LIP DISORDER [None]
  - MEMORY IMPAIRMENT [None]
  - MIXED RECEPTIVE-EXPRESSIVE LANGUAGE DISORDER [None]
  - SKULL MALFORMATION [None]
  - SPEECH DISORDER DEVELOPMENTAL [None]
  - TYMPANIC MEMBRANE DISORDER [None]
